FAERS Safety Report 9856275 (Version 1)
Quarter: 2014Q1

REPORT INFORMATION
  Report Type: Spontaneous
  Country: GB (occurrence: GB)
  Receive Date: 20140130
  Receipt Date: 20140130
  Transmission Date: 20141002
  Serious: Yes (Hospitalization)
  Sender: FDA-Public Use
  Company Number: GB-ASTRAZENECA-2014SE04853

PATIENT
  Age: 81 Year
  Sex: Female

DRUGS (15)
  1. TICAGRELOR [Suspect]
     Indication: ACUTE MYOCARDIAL INFARCTION
     Route: 048
     Dates: start: 20131127, end: 20140103
  2. ASPIRIN [Suspect]
     Indication: ACUTE MYOCARDIAL INFARCTION
     Route: 048
     Dates: start: 20131127, end: 20140103
  3. ATORVASTATIN [Concomitant]
     Indication: MYOCARDIAL ISCHAEMIA
  4. BISOPROLOL [Concomitant]
     Indication: MYOCARDIAL ISCHAEMIA
  5. DOXAZOSIN [Concomitant]
     Indication: DIABETES MELLITUS
  6. FERROUS FUMARATE [Concomitant]
     Indication: ANAEMIA
  7. FUROSEMIDE [Concomitant]
     Indication: MYOCARDIAL ISCHAEMIA
  8. GLICLAZIDE [Concomitant]
     Indication: DIABETES MELLITUS
  9. GLYCERYL TRINITRATE [Concomitant]
     Indication: MYOCARDIAL ISCHAEMIA
  10. LOSARTAN [Concomitant]
     Indication: RENAL FAILURE CHRONIC
  11. LOSARTAN [Concomitant]
     Indication: DIABETES MELLITUS
  12. LOSARTAN [Concomitant]
     Indication: RENAL FAILURE CHRONIC
  13. LOSARTAN [Concomitant]
     Indication: DIABETES MELLITUS
  14. METFORMIN [Concomitant]
     Indication: DIABETES MELLITUS
  15. OMEPRAZOLE [Concomitant]
     Indication: ANAEMIA

REACTIONS (4)
  - Anaemia [Recovering/Resolving]
  - Lethargy [Recovering/Resolving]
  - Dizziness [Recovering/Resolving]
  - Dyspnoea [Recovering/Resolving]
